FAERS Safety Report 10343715 (Version 1)
Quarter: 2014Q3

REPORT INFORMATION
  Report Type: Spontaneous
  Country: US (occurrence: US)
  Receive Date: 20140725
  Receipt Date: 20140725
  Transmission Date: 20150326
  Serious: No
  Sender: FDA-Public Use
  Company Number: US-009507513-1407USA011840

PATIENT
  Age: 78 Year
  Sex: Female

DRUGS (1)
  1. JANUVIA [Suspect]
     Active Substance: SITAGLIPTIN PHOSPHATE
     Indication: TYPE 2 DIABETES MELLITUS
     Dosage: HALF TABLET, ONCE DAILY
     Route: 048
     Dates: start: 20140721, end: 201407

REACTIONS (4)
  - Headache [Unknown]
  - Blood glucose increased [Unknown]
  - Wrong technique in drug usage process [Unknown]
  - Renal disorder [Unknown]

NARRATIVE: CASE EVENT DATE: 201407
